FAERS Safety Report 7512577-8 (Version None)
Quarter: 2011Q2

REPORT INFORMATION
  Report Type: 
  Country: None (occurrence: None)
  Receive Date: 20110525
  Receipt Date: 20110525
  Transmission Date: 20111010
  Serious: No
  Sender: FDA-Public Use
  Company Number: None

PATIENT
  Age: 79 Year
  Sex: Male

DRUGS (8)
  1. SPIRIVA [Concomitant]
  2. ATENOLOL [Concomitant]
  3. TAMSULOSIN HCL [Concomitant]
  4. ALLOPURINOL [Concomitant]
  5. WARFARIN SODIUM [Concomitant]
  6. TRIAMTERENE AND HYDROCHLOROTHIAZIDE [Concomitant]
  7. ADVAIR DISKUS 100/50 [Concomitant]
  8. LETAIRIS [Suspect]
     Indication: PULMONARY ARTERIAL HYPERTENSION
     Dosage: LETAIRIS 5MG DAILY ORAL
     Route: 048
     Dates: start: 20110519

REACTIONS (7)
  - PRURITUS [None]
  - ABDOMINAL PAIN [None]
  - PALPITATIONS [None]
  - URINARY TRACT INFECTION [None]
  - NASAL CONGESTION [None]
  - BLOOD POTASSIUM DECREASED [None]
  - OEDEMA PERIPHERAL [None]
